FAERS Safety Report 5484277-X (Version None)
Quarter: 2007Q4

REPORT INFORMATION
  Report Type: 
  Country: None (occurrence: None)
  Receive Date: 20071010
  Receipt Date: 20070713
  Transmission Date: 20080405
  Serious: Yes (Other)
  Sender: FDA-Public Use
  Company Number: 2007EN000249

PATIENT
  Sex: Male

DRUGS (1)
  1. OPANA ER [Suspect]

REACTIONS (1)
  - NO ADVERSE DRUG REACTION [None]
